FAERS Safety Report 8297740-3 (Version None)
Quarter: 2012Q2

REPORT INFORMATION
  Report Type: 
  Country: None (occurrence: None)
  Receive Date: 20120419
  Receipt Date: 20120413
  Transmission Date: 20120825
  Serious: Yes (Other)
  Sender: FDA-Public Use
  Company Number: BR-PFIZER INC-2012023153

PATIENT
  Age: 59 Year
  Sex: Female
  Weight: 72 kg

DRUGS (1)
  1. SUTENT [Suspect]
     Indication: PANCREATIC NEUROENDOCRINE TUMOUR
     Dosage: 37.5 MG, 1X/DAY
     Route: 048
     Dates: start: 20111229

REACTIONS (6)
  - DYSPHAGIA [None]
  - GINGIVAL BLEEDING [None]
  - HYPERTENSION [None]
  - GALLBLADDER DISORDER [None]
  - ORAL PAIN [None]
  - AGEUSIA [None]
